FAERS Safety Report 5318060-2 (Version None)
Quarter: 2007Q2

REPORT INFORMATION
  Report Type: 
  Country: None (occurrence: None)
  Receive Date: 20070504
  Receipt Date: 20070504
  Transmission Date: 20071010
  Serious: Yes (Other)
  Sender: FDA-Public Use
  Company Number: None

PATIENT
  Age: 55 Year
  Sex: Female

DRUGS (1)
  1. OXYTROL [Suspect]
     Dosage: APPLY 1 PATCH TWICE A WEEK AS DIRECTED
     Dates: start: 20070321, end: 20070325

REACTIONS (4)
  - APPLICATION SITE VESICLES [None]
  - INCORRECT DOSE ADMINISTERED [None]
  - PHARMACEUTICAL PRODUCT COMPLAINT [None]
  - WOUND SECRETION [None]
